FAERS Safety Report 8238090 (Version 6)
Quarter: 2012Q4

REPORT INFORMATION
  Report Type: 
  Country: US (occurrence: US)
  Receive Date: 20111109
  Receipt Date: 20121111
  Transmission Date: 20130627
  Serious: Yes (Other)
  Sender: FDA-Public Use
  Company Number: PHEH2011US07946

PATIENT
  Sex: Male

DRUGS (20)
  1. SANDOSTATIN LAR DEPOT [Suspect]
     Dosage: 10 mg, UNK
  2. SANDOSTATIN LAR DEPOT [Suspect]
     Dosage: 20 mg, QW2
     Dates: start: 2002
  3. SANDOSTATIN LAR DEPOT [Suspect]
     Dosage: 30 mg, QW3
  4. SANDOSTATIN LAR DEPOT [Suspect]
  5. SANDOSTATIN LAR DEPOT [Suspect]
     Dosage: 30 mg, every 3 weeks
     Route: 030
  6. SANDOSTATIN LAR DEPOT [Suspect]
     Dosage: 30 mg, 2 every 3 weeks
  7. LYRICA [Concomitant]
     Indication: PAIN IN EXTREMITY
  8. NEXIUM [Concomitant]
  9. PROZAC [Concomitant]
     Indication: DEPRESSION
  10. LIPITOR [Concomitant]
  11. METOPROLOL [Concomitant]
  12. DIOVAN [Concomitant]
     Indication: BLOOD PRESSURE
  13. TERAZOSIN [Concomitant]
     Indication: PROSTATE CANCER
  14. GLIPIZIDE [Concomitant]
  15. LANTUS [Concomitant]
     Indication: DIABETES MELLITUS
  16. NORCO [Concomitant]
  17. ARMOUR THYROID [Concomitant]
  18. ATORVASTATIN [Concomitant]
  19. CLOBETASOL [Concomitant]
  20. NEXIUM                             /01479302/ [Concomitant]

REACTIONS (9)
  - Hepatic cancer [Unknown]
  - Neoplasm progression [Unknown]
  - Terminal state [Unknown]
  - Cardiac disorder [Unknown]
  - Needle issue [Unknown]
  - Underdose [Unknown]
  - Flushing [Unknown]
  - Drug ineffective [Unknown]
  - Diarrhoea [Unknown]
